FAERS Safety Report 7068890-4 (Version None)
Quarter: 2010Q4

REPORT INFORMATION
  Report Type: 
  Country: None (occurrence: None)
  Receive Date: 20101028
  Receipt Date: 20101019
  Transmission Date: 20110411
  Serious: Yes (Other)
  Sender: FDA-Public Use
  Company Number: DE-ASTRAZENECA-2010SE40974

PATIENT
  Age: 8997 Day
  Sex: Male
  Weight: 55 kg

DRUGS (2)
  1. SEROQUEL XR [Suspect]
     Indication: SCHIZOPHRENIA, PARANOID TYPE
     Route: 048
     Dates: start: 20100715, end: 20100823
  2. LORAZEPAM [Concomitant]
     Indication: ANXIETY
     Dosage: 2.5 EXPIDET; IRREGULAR DOSAGE, ONCE OR TWICE A WEEK.

REACTIONS (1)
  - LEUKOPENIA [None]
